FAERS Safety Report 4463947-6 (Version None)
Quarter: 2004Q3

REPORT INFORMATION
  Report Type: 
  Country: None (occurrence: None)
  Receive Date: 20040929
  Receipt Date: 20040917
  Transmission Date: 20050211
  Serious: Yes (Other)
  Sender: FDA-Public Use
  Company Number: 2004-09-0402

PATIENT
  Age: 28 Year
  Sex: Female
  Weight: 58 kg

DRUGS (5)
  1. CLARINASE (LORATADINE/PSEUDOEPHEDRINE) REPETABS [Suspect]
     Indication: CHRONIC SINUSITIS
     Dosage: BID ORAL
     Route: 048
     Dates: start: 20040712, end: 20040716
  2. KLINOMYCIN CAPSULES [Concomitant]
  3. BUDESONIDE AEROSOL SOLUTION [Concomitant]
  4. FULFARINOL (SULFATHIAZOLE/NAPHAZOLINE) [Concomitant]
  5. AUGMENTIN TABLETS [Concomitant]

REACTIONS (17)
  - ANOREXIA [None]
  - ANXIETY [None]
  - ASTHENIA [None]
  - BACTERIAL TEST POSITIVE [None]
  - BODY TEMPERATURE DECREASED [None]
  - CHEMICAL INJURY [None]
  - EXPOSURE TO CHEMICAL POLLUTION [None]
  - FEELING ABNORMAL [None]
  - HALLUCINATION [None]
  - HALLUCINATION, AUDITORY [None]
  - HYPERTENSION [None]
  - INSOMNIA [None]
  - MENTAL DISORDER [None]
  - OVERDOSE [None]
  - THIRST [None]
  - TREMOR [None]
  - VERTIGO [None]
